FAERS Safety Report 8008141-7 (Version None)
Quarter: 2011Q4

REPORT INFORMATION
  Report Type: 
  Country: None (occurrence: None)
  Receive Date: 20111227
  Receipt Date: 20111223
  Transmission Date: 20120403
  Serious: Yes (Death)
  Sender: FDA-Public Use
  Company Number: PHHY2011AR112322

PATIENT
  Sex: Male

DRUGS (1)
  1. EXELON [Suspect]
     Indication: DEMENTIA WITH LEWY BODIES
     Route: 062
     Dates: start: 20100101

REACTIONS (3)
  - PNEUMONIA [None]
  - RENAL DISORDER [None]
  - CARDIAC DISORDER [None]
